FAERS Safety Report 22039521 (Version 1)
Quarter: 2023Q1

REPORT INFORMATION
  Report Type: Report from Study
  Country: CA (occurrence: None)
  Receive Date: 20230227
  Receipt Date: 20230227
  Transmission Date: 20230418
  Serious: Yes (Death, Hospitalization)
  Sender: FDA-Public Use
  Company Number: 2023A001338

PATIENT
  Sex: Female

DRUGS (4)
  1. FASENRA [Suspect]
     Active Substance: BENRALIZUMAB
     Indication: Asthma
     Dosage: 30.0MG UNKNOWN
     Route: 058
     Dates: start: 20181123, end: 20221230
  2. SPIRIVA [Concomitant]
     Active Substance: TIOTROPIUM BROMIDE MONOHYDRATE
     Dosage: 2INH ONCE DAILY 2.5MCG
     Route: 065
  3. VENTOLIN [Concomitant]
     Active Substance: ALBUTEROL SULFATE
     Dosage: AS NEEDED 100MCG100.0UG UNKNOWN
     Route: 065
  4. ZENHALE [Concomitant]
     Active Substance: FORMOTEROL FUMARATE\MOMETASONE FUROATE
     Dosage: 4 PUFFS 2 TIMES A DAY - 100MCG
     Route: 065

REACTIONS (2)
  - Death [Fatal]
  - Pneumonia [Not Recovered/Not Resolved]
